FAERS Safety Report 9886725 (Version 2)
Quarter: 2014Q1

REPORT INFORMATION
  Report Type: Spontaneous
  Country: US (occurrence: US)
  Receive Date: 20140210
  Receipt Date: 20140310
  Transmission Date: 20141002
  Serious: No
  Sender: FDA-Public Use
  Company Number: US-GILEAD-2014-0093988

PATIENT
  Sex: Female

DRUGS (3)
  1. LETAIRIS [Suspect]
     Indication: PRODUCT USED FOR UNKNOWN INDICATION
     Dosage: 10 MG, QD
     Route: 065
     Dates: start: 20101101
  2. FLOLAN [Concomitant]
     Route: 065
  3. ADCIRCA [Concomitant]
     Route: 065

REACTIONS (3)
  - Drug hypersensitivity [Unknown]
  - Anaemia [Unknown]
  - Nasopharyngitis [Unknown]
